FAERS Safety Report 4734798-X (Version None)
Quarter: 2005Q3

REPORT INFORMATION
  Report Type: 
  Country: None (occurrence: None)
  Receive Date: 20050804
  Receipt Date: 20050725
  Transmission Date: 20060218
  Serious: Yes (Hospitalization)
  Sender: FDA-Public Use
  Company Number: 2005AP04057

PATIENT
  Age: 78 Year
  Sex: Female

DRUGS (4)
  1. TENORMIN [Suspect]
     Indication: ESSENTIAL HYPERTENSION
     Route: 048
     Dates: end: 20040412
  2. PRAVACHOL [Concomitant]
     Indication: METABOLIC DISORDER
     Dosage: LONG TERM USE
  3. MICARDIS HCT [Concomitant]
     Indication: ESSENTIAL HYPERTENSION
     Dosage: LONG TERM USE, 40/12.5
  4. ASPIRIN [Concomitant]
     Indication: ESSENTIAL HYPERTENSION
     Dosage: LONG TERM USE

REACTIONS (5)
  - BRADYCARDIA [None]
  - CIRCULATORY COLLAPSE [None]
  - FALL [None]
  - LOSS OF CONSCIOUSNESS [None]
  - ORTHOSTATIC HYPOTENSION [None]
